FAERS Safety Report 7555221-6 (Version None)
Quarter: 2011Q2

REPORT INFORMATION
  Report Type: 
  Country: None (occurrence: None)
  Receive Date: 20110617
  Receipt Date: 20110610
  Transmission Date: 20111010
  Serious: Yes (Hospitalization)
  Sender: FDA-Public Use
  Company Number: PHHO2011US05415

PATIENT
  Sex: Female
  Weight: 98 kg

DRUGS (3)
  1. IMATINIB MESYLATE [Suspect]
     Indication: PULMONARY ARTERIAL HYPERTENSION
     Dosage: 200 MG, UNK
     Route: 048
     Dates: start: 20110107, end: 20110119
  2. IMATINIB MESYLATE [Suspect]
     Dosage: 400 MG, QD
     Route: 048
     Dates: start: 20110120, end: 20110302
  3. IMATINIB MESYLATE [Suspect]
     Dosage: 400 MG, UNK
     Route: 048
     Dates: start: 20110315

REACTIONS (3)
  - PRESYNCOPE [None]
  - VIRAL INFECTION [None]
  - PRURITUS [None]
